FAERS Safety Report 10222769 (Version 3)
Quarter: 2014Q3

REPORT INFORMATION
  Report Type: Report from Study
  Country: AU (occurrence: AU)
  Receive Date: 20140606
  Receipt Date: 20140716
  Transmission Date: 20150326
  Serious: Yes (Other)
  Sender: FDA-Public Use
  Company Number: AU-BRISTOL-MYERS SQUIBB COMPANY-20764601

PATIENT
  Age: 52 Year
  Sex: Male

DRUGS (10)
  1. GLUCOBAY [Concomitant]
     Active Substance: ACARBOSE
  2. LASIX [Concomitant]
     Active Substance: FUROSEMIDE
  3. SPIRONOLACTONE. [Suspect]
     Active Substance: SPIRONOLACTONE
  4. CARVEDILOL. [Concomitant]
     Active Substance: CARVEDILOL
  5. PLAVIX [Concomitant]
     Active Substance: CLOPIDOGREL BISULFATE
  6. BYETTA [Suspect]
     Active Substance: EXENATIDE
     Indication: TYPE 2 DIABETES MELLITUS
     Dosage: 03APR2014
     Route: 058
     Dates: start: 2013
  7. MELATONIN [Concomitant]
     Active Substance: MELATONIN
  8. ASPIRIN. [Concomitant]
     Active Substance: ASPIRIN
  9. METFORMIN [Concomitant]
     Active Substance: METFORMIN HYDROCHLORIDE
  10. AVAPRO [Concomitant]
     Active Substance: IRBESARTAN

REACTIONS (8)
  - Renal impairment [Unknown]
  - Abdominal pain upper [Recovered/Resolved]
  - Feeling jittery [Not Recovered/Not Resolved]
  - Nausea [Recovered/Resolved]
  - Cardiac failure [Recovered/Resolved]
  - Decreased appetite [Not Recovered/Not Resolved]
  - Abdominal distension [Not Recovered/Not Resolved]
  - Blood pressure increased [Recovered/Resolved]

NARRATIVE: CASE EVENT DATE: 2013
